FAERS Safety Report 9767683 (Version 1)
Quarter: 2013Q4

REPORT INFORMATION
  Report Type: Report from Study
  Country: US (occurrence: US)
  Receive Date: 20131217
  Receipt Date: 20131217
  Transmission Date: 20140711
  Serious: Yes (Other)
  Sender: FDA-Public Use
  Company Number: PHEH2013US025706

PATIENT
  Age: 72 Year
  Sex: Male
  Weight: 63.5 kg

DRUGS (1)
  1. TOBI [Suspect]
     Indication: PNEUMONIA PSEUDOMONAL
     Dosage: 5 ML, BID
     Route: 055

REACTIONS (3)
  - Blindness transient [Unknown]
  - Deafness transitory [Unknown]
  - Mental impairment [Unknown]
